FAERS Safety Report 18963083 (Version 1)
Quarter: 2021Q1

REPORT INFORMATION
  Report Type: Report from Study
  Country: BR (occurrence: BR)
  Receive Date: 20210303
  Receipt Date: 20210303
  Transmission Date: 20210420
  Serious: Yes (Hospitalization)
  Sender: FDA-Public Use
  Company Number: BR-TAKEDA-2021TUS012161

PATIENT
  Age: 44 Year
  Sex: Male
  Weight: 81 kg

DRUGS (22)
  1. HEMO?8R [Suspect]
     Active Substance: ANTIHEMOPHILIC FACTOR, HUMAN RECOMBINANT
     Dosage: 2000 INTERNATIONAL UNIT, SIX HOURS AFTER THE FIRST DOSE
     Route: 042
     Dates: start: 20201130, end: 20201205
  2. IBUPROFEN. [Concomitant]
     Active Substance: IBUPROFEN
     Indication: HEADACHE
     Dosage: 600 MILLIGRAM, PRN
     Dates: start: 20160406, end: 20160406
  3. IBUPROFENO [Concomitant]
     Active Substance: IBUPROFEN
     Indication: ARTHRALGIA
     Dosage: 600 MILLIGRAM, QD
     Dates: start: 20160705, end: 20160705
  4. PARACETAMOL [Concomitant]
     Active Substance: ACETAMINOPHEN
     Indication: PAIN
     Dosage: 70 MILLIGRAM, QD
     Dates: start: 20160920, end: 20160921
  5. HEMO?8R [Suspect]
     Active Substance: ANTIHEMOPHILIC FACTOR, HUMAN RECOMBINANT
     Dosage: 2500 INTERNATIONAL UNIT, QD TO 15 DAY
     Route: 042
     Dates: start: 20201130, end: 20201205
  6. NIMESULIDA [Concomitant]
     Active Substance: NIMESULIDE
     Dosage: 100 MILLIGRAM, QD
     Dates: start: 20160810, end: 20160816
  7. PARACETAMOL [Concomitant]
     Active Substance: ACETAMINOPHEN
     Dosage: 70 MILLIGRAM, QD
     Dates: start: 20160826, end: 20160826
  8. HEMO?8R [Suspect]
     Active Substance: ANTIHEMOPHILIC FACTOR, HUMAN RECOMBINANT
     Dosage: 1500 INTERNATIONAL UNIT,8/8H FOR FOUR DAYS
     Route: 042
     Dates: start: 20201130, end: 20201205
  9. DIPROSPAN [Concomitant]
     Active Substance: BETAMETHASONE DIPROPIONATE\BETAMETHASONE SODIUM PHOSPHATE
     Indication: PAIN
     Dosage: 7 MILLIGRAM, QD
     Dates: start: 20161024, end: 20161026
  10. IBUPROFENO [Concomitant]
     Active Substance: IBUPROFEN
     Dosage: 600 MILLIGRAM, QD
     Dates: start: 20160902, end: 20160905
  11. IBUPROFEN. [Concomitant]
     Active Substance: IBUPROFEN
     Indication: VOMITING
  12. NIMESULIDA [Concomitant]
     Active Substance: NIMESULIDE
     Indication: CONTUSION
     Dosage: 100 MILLIGRAM, QD
     Dates: start: 20170226, end: 20170227
  13. NIMESULIDA [Concomitant]
     Active Substance: NIMESULIDE
     Dosage: 100 MILLIGRAM, QD
  14. HEMO?8R [Suspect]
     Active Substance: ANTIHEMOPHILIC FACTOR, HUMAN RECOMBINANT
     Dosage: 2500 INTERNATIONAL UNIT, 12/12H FROM THE 5TH TO 7TH DAY AFTER SUGERY
     Route: 042
     Dates: start: 20201130, end: 20201205
  15. NIMESULIDA [Concomitant]
     Active Substance: NIMESULIDE
     Indication: ARTHRALGIA
     Dosage: 100 MILLIGRAM, QD
     Dates: start: 20160721, end: 20160721
  16. PARACETAMOL [Concomitant]
     Active Substance: ACETAMINOPHEN
     Indication: CONTUSION
     Dosage: 70 MILLIGRAM, QD
     Dates: start: 20161107, end: 20161108
  17. PARACETAMOL [Concomitant]
     Active Substance: ACETAMINOPHEN
     Dosage: 70 MILLIGRAM, BID
     Dates: start: 20161024, end: 20161024
  18. HEMO?8R [Suspect]
     Active Substance: ANTIHEMOPHILIC FACTOR, HUMAN RECOMBINANT
     Indication: PROPHYLAXIS
     Dosage: 2000 INTERNATIONAL UNIT
     Route: 042
     Dates: start: 20201127
  19. HEMO?8R [Suspect]
     Active Substance: ANTIHEMOPHILIC FACTOR, HUMAN RECOMBINANT
     Dosage: 4000 INTERNATIONAL UNIT, AFTER SURGERY
     Route: 042
     Dates: start: 20201130, end: 20201205
  20. MELOXICAM. [Concomitant]
     Active Substance: MELOXICAM
     Indication: ARTHRALGIA
     Dosage: 15 MILLIGRAM, QD
     Dates: start: 20160727, end: 20160728
  21. NIMESULIDA [Concomitant]
     Active Substance: NIMESULIDE
     Dosage: 100 MILLIGRAM, QD
     Dates: start: 20160623, end: 20160623
  22. NUMESULIDA [Concomitant]
     Indication: CONTUSION
     Dosage: 100 MILLIGRAM, QD
     Dates: start: 20161101, end: 20161102

REACTIONS (1)
  - Knee arthroplasty [Recovered/Resolved]

NARRATIVE: CASE EVENT DATE: 20201130
